FAERS Safety Report 9437997 (Version 1)
Quarter: 2013Q3

REPORT INFORMATION
  Report Type: Spontaneous
  Country: US (occurrence: US)
  Receive Date: 20130802
  Receipt Date: 20130802
  Transmission Date: 20140515
  Serious: No
  Sender: FDA-Public Use
  Company Number: US-BRISTOL-MYERS SQUIBB COMPANY-18931691

PATIENT
  Age: 59 Year
  Sex: Female

DRUGS (3)
  1. COUMADIN [Suspect]
     Indication: CEREBROVASCULAR ACCIDENT
     Dates: start: 2006
  2. ATORVASTATIN [Concomitant]
  3. NADOLOL [Concomitant]

REACTIONS (1)
  - Trichorrhexis [Unknown]
